FAERS Safety Report 5799613-4 (Version None)
Quarter: 2008Q3

REPORT INFORMATION
  Report Type: 
  Country: None (occurrence: None)
  Receive Date: 20080703
  Receipt Date: 20080703
  Transmission Date: 20090109
  Serious: Yes (Hospitalization)
  Sender: FDA-Public Use
  Company Number: PHEH2000US07433

PATIENT
  Sex: Female

DRUGS (2)
  1. ZOLEDRONATE T29581+SOLINF [Suspect]
     Dosage: 2.0MG
     Route: 042
     Dates: start: 19970630, end: 20000511
  2. PREDNISONE 50MG TAB [Concomitant]
     Dosage: 50,MG,QD
     Route: 048
     Dates: start: 20000610

REACTIONS (2)
  - METABOLIC ACIDOSIS [None]
  - RENAL FAILURE ACUTE [None]
